FAERS Safety Report 7806652-8 (Version None)
Quarter: 2011Q4

REPORT INFORMATION
  Report Type: 
  Country: None (occurrence: None)
  Receive Date: 20111005
  Receipt Date: 20110929
  Transmission Date: 20120403
  Serious: Yes (Death, Life-Threatening)
  Sender: FDA-Public Use
  Company Number: 2011SP046246

PATIENT
  Age: 24 Year
  Sex: Female

DRUGS (4)
  1. HYDROCODONE BITARTRATE [Concomitant]
  2. SAPHRIS [Suspect]
     Indication: PRODUCT USED FOR UNKNOWN INDICATION
     Dosage: 10 MG;HS;BID, 10 MG;BID
     Dates: end: 20110903
  3. SAPHRIS [Suspect]
     Indication: PRODUCT USED FOR UNKNOWN INDICATION
     Dosage: 10 MG;HS;BID, 10 MG;BID
     Dates: start: 20110801
  4. SAPHRIS [Suspect]
     Indication: PRODUCT USED FOR UNKNOWN INDICATION
     Dosage: 10 MG;HS;BID, 10 MG;BID
     Dates: start: 20110707

REACTIONS (2)
  - SEDATION [None]
  - ACCIDENTAL OVERDOSE [None]
